FAERS Safety Report 8912719 (Version 1)
Quarter: 2012Q4

REPORT INFORMATION
  Report Type: Report from Study
  Country: US (occurrence: US)
  Receive Date: 20121116
  Receipt Date: 20121116
  Transmission Date: 20130627
  Serious: Yes (Hospitalization, Other)
  Sender: FDA-Public Use
  Company Number: US-ABBOTT-12P-163-1006276-00

PATIENT
  Sex: Female

DRUGS (7)
  1. HUMIRA [Suspect]
     Indication: RHEUMATOID ARTHRITIS
     Route: 058
     Dates: start: 201206, end: 201206
  2. ASPIRIN [Concomitant]
     Indication: PRODUCT USED FOR UNKNOWN INDICATION
  3. MAXIDE [Concomitant]
     Indication: FLUID RETENTION
     Dosage: 37.5/25mg daily
  4. SYNTHROID [Concomitant]
     Indication: HYPOTHYROIDISM
  5. FOLIC ACID [Concomitant]
     Indication: VITAMIN SUPPLEMENTATION
  6. VITAMIN D [Concomitant]
     Indication: PRODUCT USED FOR UNKNOWN INDICATION
  7. METHOTREXATE SODIUM [Concomitant]
     Indication: RHEUMATOID ARTHRITIS
     Dates: start: 201106, end: 201206

REACTIONS (4)
  - Wound secretion [Not Recovered/Not Resolved]
  - Device related infection [Recovering/Resolving]
  - Abdominal pain [Recovered/Resolved]
  - Erythema [Recovering/Resolving]
